FAERS Safety Report 4361031-3 (Version None)
Quarter: 2004Q2

REPORT INFORMATION
  Report Type: 
  Country: None (occurrence: None)
  Receive Date: 20040517
  Receipt Date: 20030918
  Transmission Date: 20050107
  Serious: Yes (Hospitalization)
  Sender: FDA-Public Use
  Company Number: 2003-106486-NL

PATIENT
  Age: 30 Year
  Sex: Female

DRUGS (2)
  1. MIRTAZAPINE [Suspect]
     Dosage: DF
     Dates: start: 20021031
  2. VENLAFAXINE HCL [Suspect]
     Dosage: 37.5 MG
     Dates: start: 20021030, end: 20021031

REACTIONS (10)
  - AGITATION [None]
  - BLOOD PRESSURE SYSTOLIC INCREASED [None]
  - BODY TEMPERATURE DECREASED [None]
  - FEELING ABNORMAL [None]
  - HEART RATE INCREASED [None]
  - MYOCLONUS [None]
  - RESPIRATORY RATE INCREASED [None]
  - SEROTONIN SYNDROME [None]
  - SPEECH DISORDER [None]
  - TREMOR [None]
